FAERS Safety Report 9306532 (Version 1)
Quarter: 2013Q2

REPORT INFORMATION
  Report Type: Spontaneous
  Country: FI (occurrence: FI)
  Receive Date: 20130523
  Receipt Date: 20130523
  Transmission Date: 20140414
  Serious: Yes (Other)
  Sender: FDA-Public Use
  Company Number: FI-PFIZER INC-2013085930

PATIENT
  Age: 70 Year
  Sex: Female

DRUGS (4)
  1. NORVASC [Suspect]
     Indication: ANGINA PECTORIS
     Dosage: 5 MG, 1X/DAY
     Route: 048
     Dates: start: 20130212, end: 20130326
  2. ACETYLSALICYLIC ACID [Concomitant]
  3. CLOPIDOGREL [Concomitant]
  4. OLMETEC [Concomitant]

REACTIONS (5)
  - Blood creatine phosphokinase increased [Unknown]
  - Joint swelling [Recovering/Resolving]
  - Muscle spasms [Unknown]
  - Fall [Unknown]
  - Myalgia [Recovered/Resolved]
